FAERS Safety Report 18584916 (Version 1)
Quarter: 2020Q4

REPORT INFORMATION
  Report Type: Other
  Country: US (occurrence: US)
  Receive Date: 20201207
  Receipt Date: 20201207
  Transmission Date: 20210114
  Serious: No
  Sender: FDA-Public Use
  Company Number: US-FDC LIMITED-2100689

PATIENT
  Age: 84 Year
  Sex: Female
  Weight: 65.91 kg

DRUGS (1)
  1. CIPROFLOXACIN. [Suspect]
     Active Substance: CIPROFLOXACIN
     Indication: CONJUNCTIVITIS BACTERIAL
     Route: 047
     Dates: start: 20201104, end: 20201110

REACTIONS (1)
  - Deposit eye [Not Recovered/Not Resolved]

NARRATIVE: CASE EVENT DATE: 202011
